FAERS Safety Report 23449820 (Version 1)
Quarter: 2024Q1

REPORT INFORMATION
  Report Type: Spontaneous
  Country: US (occurrence: US)
  Receive Date: 20240129
  Receipt Date: 20240129
  Transmission Date: 20240409
  Serious: Yes (Other)
  Sender: FDA-Public Use
  Company Number: US-LUPIN PHARMACEUTICALS INC.-2024-00409

PATIENT
  Age: 78 Year
  Sex: Female

DRUGS (12)
  1. RIFAMPIN [Interacting]
     Active Substance: RIFAMPIN
     Indication: Mycobacterium avium complex infection
     Dosage: UNK
     Route: 065
     Dates: start: 201208, end: 201304
  2. RIFAMPIN [Interacting]
     Active Substance: RIFAMPIN
     Indication: Pneumonia bacterial
     Dosage: UNK
     Route: 065
     Dates: end: 201706
  3. LEVOTHYROXINE [Interacting]
     Active Substance: LEVOTHYROXINE\LEVOTHYROXINE SODIUM
     Indication: Thyroid hormone replacement therapy
     Dosage: 75 MICROGRAM, QD
     Route: 065
  4. LEVOTHYROXINE [Interacting]
     Active Substance: LEVOTHYROXINE\LEVOTHYROXINE SODIUM
     Dosage: 88 MICROGRAM, QD
     Route: 065
  5. LEVOTHYROXINE [Interacting]
     Active Substance: LEVOTHYROXINE\LEVOTHYROXINE SODIUM
     Dosage: 150 MICROGRAM, QD
     Route: 065
  6. LEVOTHYROXINE [Interacting]
     Active Substance: LEVOTHYROXINE\LEVOTHYROXINE SODIUM
     Dosage: 139 MICROGRAM, QD
     Route: 065
  7. LEVOTHYROXINE [Interacting]
     Active Substance: LEVOTHYROXINE\LEVOTHYROXINE SODIUM
     Dosage: 100 MICROGRAM, QD
     Route: 065
     Dates: start: 201404
  8. LEVOTHYROXINE [Interacting]
     Active Substance: LEVOTHYROXINE\LEVOTHYROXINE SODIUM
     Dosage: 75 MICROGRAM, QD
     Route: 065
     Dates: start: 201404
  9. LEVOTHYROXINE [Interacting]
     Active Substance: LEVOTHYROXINE\LEVOTHYROXINE SODIUM
     Dosage: 125 MICROGRAM, QD
     Route: 065
     Dates: start: 201603
  10. LEVOTHYROXINE [Interacting]
     Active Substance: LEVOTHYROXINE\LEVOTHYROXINE SODIUM
     Dosage: 75 MICROGRAM, QD
     Route: 065
     Dates: start: 201709
  11. LEVOTHYROXINE [Interacting]
     Active Substance: LEVOTHYROXINE\LEVOTHYROXINE SODIUM
     Dosage: 88 MICROGRAM, QD
     Route: 065
     Dates: start: 201709
  12. LEVOTHYROXINE [Interacting]
     Active Substance: LEVOTHYROXINE\LEVOTHYROXINE SODIUM
     Dosage: 64 MICROGRAM, QD
     Route: 065

REACTIONS (4)
  - Hypothyroidism [Recovered/Resolved]
  - Drug level decreased [Recovered/Resolved]
  - Drug interaction [Unknown]
  - Off label use [Unknown]
